FAERS Safety Report 4349574-X (Version None)
Quarter: 2004Q1

REPORT INFORMATION
  Report Type: 
  Country: None (occurrence: None)
  Receive Date: 20040329
  Receipt Date: 20031202
  Transmission Date: 20041129
  Serious: No
  Sender: FDA-Public Use
  Company Number: USA031253746

PATIENT
  Age: 7 Year
  Sex: Female

DRUGS (5)
  1. ZYPREXA [Suspect]
     Dates: start: 20030414, end: 20030701
  2. STRATTERA [Suspect]
  3. CLONIDINE HCL [Concomitant]
  4. ADDERALL 10 [Concomitant]
  5. TRAZADONE(TRAZODONE) [Concomitant]

REACTIONS (3)
  - BILATERAL BREAST BUDS [None]
  - FAT TISSUE INCREASED [None]
  - WEIGHT INCREASED [None]
